FAERS Safety Report 10088814 (Version 1)
Quarter: 2014Q2

REPORT INFORMATION
  Report Type: Spontaneous
  Country: TR (occurrence: TR)
  Receive Date: 20140421
  Receipt Date: 20140421
  Transmission Date: 20141212
  Serious: Yes (Death, Hospitalization)
  Sender: FDA-Public Use
  Company Number: TR-JNJFOC-20140405536

PATIENT
  Sex: Male

DRUGS (3)
  1. ZYTIGA [Suspect]
     Indication: PROSTATE CANCER
     Route: 048
     Dates: start: 20140116
  2. PREDNISOLONE [Concomitant]
     Indication: BONE PAIN
     Route: 065
  3. ZOLEDRONIC ACID [Concomitant]
     Indication: BONE PAIN
     Route: 065

REACTIONS (5)
  - Fatigue [Fatal]
  - Asthenia [Fatal]
  - Epistaxis [Fatal]
  - Depression [Unknown]
  - Decreased appetite [Unknown]
